FAERS Safety Report 7425646-8 (Version None)
Quarter: 2011Q2

REPORT INFORMATION
  Report Type: 
  Country: None (occurrence: None)
  Receive Date: 20110420
  Receipt Date: 20110411
  Transmission Date: 20111010
  Serious: Yes (Other)
  Sender: FDA-Public Use
  Company Number: AU-ASTRAZENECA-2011SE20635

PATIENT
  Age: 7 Year
  Sex: Male

DRUGS (5)
  1. PROPOFOL [Suspect]
     Route: 042
  2. FRESOFOL [Suspect]
     Dosage: 2 DOSES
     Route: 042
  3. PROPOFOL [Suspect]
     Route: 042
  4. PROPOFOL [Suspect]
     Dosage: TEST DOSE
     Route: 042
  5. SEVOFLURANE [Concomitant]

REACTIONS (3)
  - URTICARIA [None]
  - GENERALISED ERYTHEMA [None]
  - HYPERSENSITIVITY [None]
